FAERS Safety Report 8790168 (Version 3)
Quarter: 2013Q2

REPORT INFORMATION
  Report Type: Report from Study
  Country: JP (occurrence: JP)
  Receive Date: 20120914
  Receipt Date: 20130411
  Transmission Date: 20140414
  Serious: Yes (Hospitalization, Other)
  Sender: FDA-Public Use
  Company Number: JP-ASTELLAS-2012US007833

PATIENT
  Age: 77 Year
  Sex: Male
  Weight: 67.5 kg

DRUGS (18)
  1. ERLOTINIB TABLET [Suspect]
     Indication: PANCREATIC CARCINOMA
     Dosage: 100 MG, UID/QD
     Route: 048
     Dates: start: 20120727, end: 20121012
  2. GEMCITABINE [Suspect]
     Indication: PANCREATIC CARCINOMA
     Dosage: 1000 MG/M2, UID/QD
     Route: 041
     Dates: start: 20120727, end: 20120727
  3. GEMCITABINE [Suspect]
     Dosage: 1000 MG/M2, UID/QD
     Route: 041
     Dates: start: 20120803, end: 20120803
  4. GEMCITABINE [Suspect]
     Dosage: 1000 MG/M2, UID/QD
     Route: 041
     Dates: start: 20120810, end: 20120810
  5. GEMCITABINE [Suspect]
     Dosage: 1000 MG/M2, UID/QD
     Route: 041
     Dates: start: 20120824, end: 20120824
  6. GEMCITABINE [Suspect]
     Dosage: 1000 MG/M2, UID/QD
     Route: 041
     Dates: start: 20120830, end: 20120830
  7. AMARYL [Concomitant]
     Indication: PRODUCT USED FOR UNKNOWN INDICATION
     Dosage: 3 MG, UID/QD
     Route: 048
     Dates: end: 20121102
  8. THEO-DUR [Concomitant]
     Indication: PRODUCT USED FOR UNKNOWN INDICATION
     Dosage: 200 MG, UID/QD
     Route: 048
     Dates: end: 20121102
  9. MEPTIN [Concomitant]
     Indication: PROPHYLAXIS
     Dosage: 100 UG, UID/QD
     Route: 048
     Dates: end: 20121102
  10. NORVASC [Concomitant]
     Indication: PRODUCT USED FOR UNKNOWN INDICATION
     Dosage: 5 MG, UID/QD
     Route: 048
     Dates: end: 20121102
  11. GASTER D [Concomitant]
     Indication: PRODUCT USED FOR UNKNOWN INDICATION
     Dosage: 20 MG, UID/QD
     Route: 048
     Dates: end: 20121102
  12. BASEN [Concomitant]
     Indication: PRODUCT USED FOR UNKNOWN INDICATION
     Dosage: 0.3 MG, UID/QD
     Route: 048
     Dates: end: 20121102
  13. URSO                               /00465701/ [Concomitant]
     Indication: PRODUCT USED FOR UNKNOWN INDICATION
     Dosage: 300 MG, UID/QD
     Route: 048
     Dates: end: 20121102
  14. AMBROXOL HYDROCHLORIDE [Concomitant]
     Indication: PROPHYLAXIS
     Dosage: 45 MG, UID/QD
     Route: 048
     Dates: end: 20121102
  15. METFORMIN HYDROCHLORIDE [Concomitant]
     Indication: PRODUCT USED FOR UNKNOWN INDICATION
     Dosage: 750 MG, UID/QD
     Route: 048
     Dates: end: 20121102
  16. MAGNESIUM OXIDE [Concomitant]
     Indication: PRODUCT USED FOR UNKNOWN INDICATION
     Dosage: 990 MG, UID/QD
     Route: 048
     Dates: end: 20121102
  17. URIEF [Concomitant]
     Indication: PRODUCT USED FOR UNKNOWN INDICATION
     Dosage: 8 MG, UID/QD
     Route: 048
     Dates: end: 20121102
  18. DUTASTERIDE [Concomitant]
     Indication: PRODUCT USED FOR UNKNOWN INDICATION
     Dosage: 0.5 MG, UID/QD
     Route: 048
     Dates: end: 20121102

REACTIONS (5)
  - Pulmonary embolism [Recovering/Resolving]
  - Performance status decreased [Unknown]
  - Malignant neoplasm progression [Unknown]
  - Malaise [Recovering/Resolving]
  - Pruritus [Recovering/Resolving]
